FAERS Safety Report 12831347 (Version 1)
Quarter: 2016Q4

REPORT INFORMATION
  Report Type: Report from Study
  Country: NL (occurrence: NL)
  Receive Date: 20161008
  Receipt Date: 20161008
  Transmission Date: 20170207
  Serious: Yes (Death, Other)
  Sender: FDA-Public Use
  Company Number: NL-AMGEN-NLDSL2016130119

PATIENT
  Age: 61 Year
  Sex: Female

DRUGS (2)
  1. ARANESP [Suspect]
     Active Substance: DARBEPOETIN ALFA
     Indication: ANAEMIA
  2. ARANESP [Suspect]
     Active Substance: DARBEPOETIN ALFA
     Indication: ANAEMIA OF MALIGNANT DISEASE
     Dosage: 500 MUG/ML (1.0 ML), Q3WK
     Route: 058

REACTIONS (3)
  - General physical health deterioration [Unknown]
  - Confusional state [Unknown]
  - Death [Fatal]

NARRATIVE: CASE EVENT DATE: 20160919
